FAERS Safety Report 25119612 (Version 1)
Quarter: 2025Q1

REPORT INFORMATION
  Report Type: Spontaneous
  Country: US (occurrence: US)
  Receive Date: 20250325
  Receipt Date: 20250325
  Transmission Date: 20250409
  Serious: Yes (Other)
  Sender: MYLAN
  Company Number: US-MYLANLABS-2025M1025843

PATIENT
  Age: 54 Year
  Sex: Female

DRUGS (8)
  1. NITROGLYCERIN [Suspect]
     Active Substance: NITROGLYCERIN
     Indication: Prinzmetal angina
  2. NITROGLYCERIN [Suspect]
     Active Substance: NITROGLYCERIN
     Route: 065
  3. NITROGLYCERIN [Suspect]
     Active Substance: NITROGLYCERIN
     Route: 065
  4. NITROGLYCERIN [Suspect]
     Active Substance: NITROGLYCERIN
  5. DUPILUMAB [Suspect]
     Active Substance: DUPILUMAB
     Indication: Lichen sclerosus
  6. DUPILUMAB [Suspect]
     Active Substance: DUPILUMAB
     Route: 065
  7. DUPILUMAB [Suspect]
     Active Substance: DUPILUMAB
     Route: 065
  8. DUPILUMAB [Suspect]
     Active Substance: DUPILUMAB

REACTIONS (1)
  - Drug ineffective [Unknown]
